FAERS Safety Report 20881294 (Version 1)
Quarter: 2022Q2

REPORT INFORMATION
  Report Type: Report from Study
  Country: US (occurrence: US)
  Receive Date: 20220526
  Receipt Date: 20220526
  Transmission Date: 20220721
  Serious: Yes (Hospitalization)
  Sender: FDA-Public Use
  Company Number: US-ABBVIE-22K-163-4367764-00

PATIENT
  Sex: Male

DRUGS (1)
  1. HUMIRA [Suspect]
     Active Substance: ADALIMUMAB
     Indication: Psoriasis
     Dosage: CITRATE FREE
     Route: 058

REACTIONS (6)
  - Malaise [Unknown]
  - Chest pain [Unknown]
  - Fatigue [Unknown]
  - Arterial occlusive disease [Unknown]
  - Tooth extraction [Unknown]
  - Tooth fracture [Unknown]

NARRATIVE: CASE EVENT DATE: 20220101
